FAERS Safety Report 7019286-2 (Version None)
Quarter: 2010Q3

REPORT INFORMATION
  Report Type: 
  Country: None (occurrence: None)
  Receive Date: 20100924
  Receipt Date: 20100812
  Transmission Date: 20110219
  Serious: Yes (Death, Hospitalization)
  Sender: FDA-Public Use
  Company Number: PPC201000045

PATIENT
  Age: 65 Year
  Sex: Male

DRUGS (1)
  1. AMIODARONE HCL [Suspect]
     Indication: ATRIAL FIBRILLATION
     Dosage: 200 MG, DAILY

REACTIONS (15)
  - ACUTE PULMONARY OEDEMA [None]
  - BLOOD PH INCREASED [None]
  - CARDIAC FAILURE [None]
  - CYANOSIS [None]
  - ELECTROCARDIOGRAM ST SEGMENT DEPRESSION [None]
  - GALLOP RHYTHM PRESENT [None]
  - HYPERTHYROIDISM [None]
  - HYPOTENSION [None]
  - IRRITABILITY [None]
  - MULTI-ORGAN FAILURE [None]
  - PULMONARY FIBROSIS [None]
  - PYREXIA [None]
  - RESTLESSNESS [None]
  - SPUTUM DISCOLOURED [None]
  - TACHYCARDIA [None]
